FAERS Safety Report 5447788-9 (Version None)
Quarter: 2007Q3

REPORT INFORMATION
  Report Type: 
  Country: None (occurrence: None)
  Receive Date: 20070910
  Receipt Date: 20070906
  Transmission Date: 20080115
  Serious: Yes (Life-Threatening, Hospitalization, Disabling, Other)
  Sender: FDA-Public Use
  Company Number: GB-ASTRAZENECA-2007GB01842

PATIENT
  Age: 79 Year
  Sex: Male

DRUGS (11)
  1. CASODEX [Suspect]
     Route: 048
     Dates: start: 20070206, end: 20070305
  2. ZOLADEX [Suspect]
     Dosage: FREQUENCY - 10.8 MG, EVERY 12 WEEKS
     Route: 058
     Dates: start: 20070220
  3. AMIODARONE [Concomitant]
     Route: 048
     Dates: start: 20070309, end: 20070320
  4. AMIODARONE [Concomitant]
     Route: 048
     Dates: start: 20070321, end: 20070810
  5. ASPIRIN [Concomitant]
     Route: 048
  6. ATORVASTATIN [Concomitant]
     Route: 048
     Dates: start: 20070310, end: 20070627
  7. BENDROFLUAZIDE [Concomitant]
     Route: 048
     Dates: end: 20070309
  8. BISOPROLOL [Concomitant]
     Route: 048
     Dates: start: 20070310
  9. FINASTERIDE [Concomitant]
     Route: 048
  10. PERINDOPRIL ERBUMINE [Concomitant]
     Route: 048
     Dates: start: 20070310
  11. SIMVASTATIN [Concomitant]
     Route: 048
     Dates: end: 20070309

REACTIONS (6)
  - ANGINA UNSTABLE [None]
  - ARRHYTHMIA [None]
  - ATRIAL FIBRILLATION [None]
  - CHEST PAIN [None]
  - EPISTAXIS [None]
  - MYOCARDIAL INFARCTION [None]
